FAERS Safety Report 20738922 (Version 3)
Quarter: 2022Q2

REPORT INFORMATION
  Report Type: Report from Study
  Country: US (occurrence: US)
  Receive Date: 20220422
  Receipt Date: 20220601
  Transmission Date: 20220721
  Serious: Yes (Hospitalization)
  Sender: FDA-Public Use
  Company Number: US-NOVARTISPH-NVSC2022US092257

PATIENT
  Age: 72 Year
  Sex: Male
  Weight: 83.5 kg

DRUGS (4)
  1. MAXIDEX [Suspect]
     Active Substance: DEXAMETHASONE
     Indication: Plasma cell myeloma
     Dosage: UNK
     Route: 042
     Dates: start: 20201015, end: 20210709
  2. CYCLOPHOSPHAMIDE [Suspect]
     Active Substance: CYCLOPHOSPHAMIDE
     Indication: Plasma cell myeloma
     Dosage: 2280 MG, QD
     Route: 042
     Dates: start: 20211014, end: 20211014
  3. CARFILZOMIB [Suspect]
     Active Substance: CARFILZOMIB
     Indication: Product used for unknown indication
     Dosage: 110 MG
     Route: 042
     Dates: start: 20201015
  4. CARFILZOMIB [Suspect]
     Active Substance: CARFILZOMIB
     Dosage: 88 MG
     Route: 042
     Dates: start: 20210709

REACTIONS (4)
  - Febrile neutropenia [Recovered/Resolved]
  - Arthralgia [Recovered/Resolved]
  - Pyrexia [Recovered/Resolved]
  - Mobility decreased [Recovering/Resolving]

NARRATIVE: CASE EVENT DATE: 20211024
